FAERS Safety Report 25811151 (Version 2)
Quarter: 2025Q4

REPORT INFORMATION
  Report Type: Report from Study
  Country: US (occurrence: US)
  Receive Date: 20250917
  Receipt Date: 20251010
  Transmission Date: 20260118
  Serious: Yes (Hospitalization, Other)
  Sender: BIOVITRUM
  Company Number: US-BIOVITRUM-2025-US-008159

PATIENT
  Age: 49 Year
  Sex: Female

DRUGS (1)
  1. KINERET [Suspect]
     Active Substance: ANAKINRA
     Indication: Rheumatoid arthritis
     Dosage: DAILY
     Route: 058
     Dates: start: 20241130

REACTIONS (7)
  - Gastrointestinal infection [Unknown]
  - Sepsis [Unknown]
  - Infection [Unknown]
  - Nephrolithiasis [Unknown]
  - Clostridium difficile infection [Unknown]
  - Pain [Unknown]
  - Product dose omission issue [Unknown]
